FAERS Safety Report 15076362 (Version 3)
Quarter: 2020Q3

REPORT INFORMATION
  Report Type: Spontaneous
  Country: JP (occurrence: JP)
  Receive Date: 20180627
  Receipt Date: 20200917
  Transmission Date: 20201102
  Serious: Yes (Other)
  Sender: FDA-Public Use
  Company Number: JP-BAYER-2018-116592

PATIENT
  Age: 67 Year
  Sex: Male
  Weight: 58 kg

DRUGS (7)
  1. STIVARGA [Suspect]
     Active Substance: REGORAFENIB
     Indication: HEPATOCELLULAR CARCINOMA
     Dosage: DAILY DOSE 80 MG, 3?WEEK TREATMENT FOLLOWED BY 1?WEEK REST PERIOD
     Route: 048
     Dates: start: 201712, end: 201801
  2. NEXAVAR [Suspect]
     Active Substance: SORAFENIB
     Indication: HEPATOCELLULAR CARCINOMA
     Dosage: DAILY DOSE 800 MG
     Route: 048
     Dates: start: 201710, end: 201711
  3. STIVARGA [Suspect]
     Active Substance: REGORAFENIB
     Indication: HEPATOCELLULAR CARCINOMA
     Dosage: DAILY DOSE 40 MG
     Route: 048
     Dates: start: 201801, end: 201802
  4. STIVARGA [Suspect]
     Active Substance: REGORAFENIB
     Indication: HEPATOCELLULAR CARCINOMA
     Dosage: DAILY DOSE 80 MG,2?WEEK TREATMENT FOLLOWED BY 1?WEEK REST PERIOD
     Route: 048
     Dates: start: 2018, end: 201803
  5. STIVARGA [Suspect]
     Active Substance: REGORAFENIB
     Indication: HEPATOCELLULAR CARCINOMA
     Dosage: DAILY DOSE 40 MG, 3?WEEK TREATMENT FOLLOWED BY 2?WEEK REST PERIOD
     Route: 048
     Dates: start: 201803
  6. STIVARGA [Suspect]
     Active Substance: REGORAFENIB
     Indication: HEPATOCELLULAR CARCINOMA
     Dosage: AFTER 4 COURSES, DAILY DOSE 40 MG, 3?WEEK TREATMENT FOLLOWED BY 2?WEEK REST PERIOD, 15 COURSES IN TO
  7. NEXAVAR [Suspect]
     Active Substance: SORAFENIB
     Indication: HEPATOCELLULAR CARCINOMA
     Dosage: DAILY DOSE 400 MG
     Route: 048
     Dates: start: 201711, end: 201712

REACTIONS (14)
  - Hepatocellular carcinoma [None]
  - Platelet count decreased [None]
  - Palmar-plantar erythrodysaesthesia syndrome [None]
  - Protein induced by vitamin K absence or antagonist II increased [None]
  - Decreased appetite [None]
  - Alpha 1 foetoprotein increased [None]
  - Diarrhoea [None]
  - Rash [None]
  - Malaise [None]
  - Hepatic function abnormal [None]
  - Diarrhoea [None]
  - Malaise [None]
  - Off label use [None]
  - Palmar-plantar erythrodysaesthesia syndrome [None]

NARRATIVE: CASE EVENT DATE: 201710
